FAERS Safety Report 8219606-7 (Version None)
Quarter: 2012Q1

REPORT INFORMATION
  Report Type: 
  Country: None (occurrence: None)
  Receive Date: 20120319
  Receipt Date: 20120314
  Transmission Date: 20120608
  Serious: Yes (Life-Threatening, Hospitalization)
  Sender: FDA-Public Use
  Company Number: GB-ASTRAZENECA-2012SE17389

PATIENT
  Age: 62 Year
  Sex: Female

DRUGS (15)
  1. CITALOPRAM HYDROBROMIDE [Concomitant]
  2. CYCLIZINE [Concomitant]
  3. METOCLOPRAMIDE [Concomitant]
  4. MORPHINE SULFATE [Concomitant]
  5. SODIUM ALGINATE [Concomitant]
  6. TIOTROPIUM BROMIDE [Concomitant]
  7. ALBUTEROL [Concomitant]
  8. FLUTICASONE PROPIONATE/SALMETEROL [Concomitant]
  9. LISINOPRIL [Suspect]
     Indication: HYPERTENSION
     Route: 048
     Dates: start: 20100806
  10. LEVOTHYROXINE SODIUM [Concomitant]
  11. ACETAMINOPHEN [Concomitant]
  12. OMEPRAZOLE [Concomitant]
  13. PRAVASTATIN [Concomitant]
  14. DOCUSATE SODIUM [Concomitant]
  15. GLICLAZIDE [Concomitant]

REACTIONS (5)
  - WHEEZING [None]
  - ANGIOEDEMA [None]
  - PALLOR [None]
  - DYSPNOEA [None]
  - TONGUE OEDEMA [None]
